FAERS Safety Report 6065673-9 (Version None)
Quarter: 2009Q1

REPORT INFORMATION
  Report Type: 
  Country: None (occurrence: None)
  Receive Date: 20090130
  Receipt Date: 20090119
  Transmission Date: 20090719
  Serious: Yes (Life-Threatening)
  Sender: FDA-Public Use
  Company Number: 2009AP000257

PATIENT
  Age: 79 Year
  Sex: Female

DRUGS (9)
  1. AMLODIPINE BESYLATE [Suspect]
     Dosage: 5 MG;PO;QD
     Route: 048
  2. RANITIDINE HYDROCHLORIDE [Suspect]
     Dosage: 300 MG PO
     Route: 048
  3. ASPIRIN [Suspect]
     Dosage: 75 MG;PO
     Route: 048
  4. ATORVASTATIN CALCIUM [Suspect]
     Dosage: 10 MG;PO
     Route: 048
  5. LANSOPRAZOLE [Suspect]
     Dosage: 30 MG;QD PO
     Route: 048
  6. SERETIDE (SERETIDE MITE) [Suspect]
     Indication: ASTHMA
     Dosage: 4 DF;INH
     Route: 055
  7. TEMAZEPAM [Suspect]
     Dosage: 20 MG;PO
     Route: 048
  8. VALSARTAN [Suspect]
     Dosage: 80 MG;PO
     Route: 048
  9. VENTOLIN [Suspect]
     Dosage: 800 UG;INH
     Route: 055

REACTIONS (2)
  - ASTHMA [None]
  - LOWER RESPIRATORY TRACT INFECTION [None]
